FAERS Safety Report 17994468 (Version 2)
Quarter: 2020Q3

REPORT INFORMATION
  Report Type: Spontaneous
  Country: US (occurrence: US)
  Receive Date: 20200708
  Receipt Date: 20200713
  Transmission Date: 20201103
  Serious: No
  Sender: FDA-Public Use
  Company Number: US-PFIZER INC-2019214372

PATIENT
  Age: 14 Year
  Sex: Male
  Weight: 99.79 kg

DRUGS (4)
  1. VITAMIN D [COLECALCIFEROL] [Concomitant]
     Active Substance: CHOLECALCIFEROL
     Indication: VITAMIN D DECREASED
     Dosage: 2000 IU, DAILY
     Dates: start: 2019
  2. GENOTROPIN [Suspect]
     Active Substance: SOMATROPIN
     Indication: JOUBERT SYNDROME
     Dosage: 1.6 MG (1.6MG INJECTION IN THE ARMS, 5 DAYS A WEEK)
  3. GENOTROPIN [Suspect]
     Active Substance: SOMATROPIN
     Indication: BLOOD GROWTH HORMONE ABNORMAL
     Dosage: 1.6 MG, 1X/DAY (1.6MG ONCE A DAY BY INJECTION); (12 MG 36U)
     Dates: start: 2018
  4. GENOTROPIN [Suspect]
     Active Substance: SOMATROPIN
     Indication: HYPOPITUITARISM

REACTIONS (5)
  - Product dose omission issue [Not Recovered/Not Resolved]
  - Circumstance or information capable of leading to device use error [Unknown]
  - Device issue [Unknown]
  - Wrong technique in device usage process [Unknown]
  - Device information output issue [Unknown]
